FAERS Safety Report 9271273 (Version 1)
Quarter: 2013Q2

REPORT INFORMATION
  Report Type: Spontaneous
  Country: US (occurrence: US)
  Receive Date: 20130506
  Receipt Date: 20130506
  Transmission Date: 20140414
  Serious: Yes (Congenital Anomaly, Other)
  Sender: FDA-Public Use
  Company Number: US-ELI_LILLY_AND_COMPANY-US201304008027

PATIENT
  Sex: 0

DRUGS (1)
  1. PROZAC [Suspect]
     Dosage: 10 MG, QD
     Route: 064

REACTIONS (7)
  - Pulmonary valve stenosis [Unknown]
  - Congenital oral malformation [Unknown]
  - Acoustic stimulation tests abnormal [Unknown]
  - Speech disorder [Unknown]
  - Attention deficit/hyperactivity disorder [Unknown]
  - Hypersensitivity [Unknown]
  - Foetal exposure during pregnancy [Unknown]
